FAERS Safety Report 7017763-1 (Version None)
Quarter: 2010Q3

REPORT INFORMATION
  Report Type: 
  Country: None (occurrence: None)
  Receive Date: 20100927
  Receipt Date: 20100927
  Transmission Date: 20110219
  Serious: No
  Sender: FDA-Public Use
  Company Number: None

PATIENT
  Age: 42 Year
  Sex: Female
  Weight: 56.6996 kg

DRUGS (2)
  1. NITROFURANTOIN [Suspect]
  2. MACROBID [Concomitant]

REACTIONS (7)
  - CHEST PAIN [None]
  - DRUG HYPERSENSITIVITY [None]
  - MUSCLE TWITCHING [None]
  - MUSCULOSKELETAL CHEST PAIN [None]
  - PARAESTHESIA [None]
  - PARAESTHESIA ORAL [None]
  - POOR PERIPHERAL CIRCULATION [None]
